FAERS Safety Report 21566728 (Version 1)
Quarter: 2022Q4

REPORT INFORMATION
  Report Type: Spontaneous
  Country: CN (occurrence: CN)
  Receive Date: 20221108
  Receipt Date: 20221108
  Transmission Date: 20230112
  Serious: Yes (Other)
  Sender: FDA-Public Use
  Company Number: None

PATIENT
  Age: 48 Year
  Sex: Female
  Weight: 60.5 kg

DRUGS (4)
  1. CYCLOPHOSPHAMIDE [Suspect]
     Active Substance: CYCLOPHOSPHAMIDE
     Indication: Breast cancer
     Dosage: 900 MG, QD, DILUTED WITH 100 ML OF 0.9 % SODIUM CHLORIDE
     Route: 041
     Dates: start: 20220829, end: 20220829
  2. SODIUM CHLORIDE [Suspect]
     Active Substance: SODIUM CHLORIDE
     Indication: Medication dilution
     Dosage: 100 ML, QD, USED TO DILUTE 900 MG OF CYCLOPHOSPHAMIDE
     Route: 041
     Dates: start: 20220829, end: 20220829
  3. SODIUM CHLORIDE [Suspect]
     Active Substance: SODIUM CHLORIDE
     Dosage: 250 ML, QD, USED TO DILUTE 150 MG OF EPIRUBICIN HYDROCHLORIDE
     Route: 041
     Dates: start: 20220829, end: 20220829
  4. EPIRUBICIN HYDROCHLORIDE [Suspect]
     Active Substance: EPIRUBICIN HYDROCHLORIDE
     Indication: Breast cancer
     Dosage: 150 MG, QD, DILUTED WITH 250 ML OF 0.9 % SODIUM CHLORIDE
     Route: 041
     Dates: start: 20220829, end: 20220829

REACTIONS (2)
  - Neutrophil count decreased [Recovering/Resolving]
  - Platelet count decreased [Recovering/Resolving]

NARRATIVE: CASE EVENT DATE: 20220906
